FAERS Safety Report 8760074 (Version 1)
Quarter: 2012Q4

REPORT INFORMATION
  Report Type: Spontaneous
  Country: US (occurrence: None)
  Receive Date: 20120829
  Receipt Date: 20120829
  Transmission Date: 20130627
  Serious: Yes (Life-Threatening, Hospitalization, Disabling)
  Sender: FDA-Public Use
  Company Number: None

PATIENT
  Age: 83 Year
  Sex: Female
  Weight: 50 kg

DRUGS (1)
  1. ALDARA [Suspect]
     Indication: SKIN CANCER
     Dates: start: 20120601, end: 20120801

REACTIONS (10)
  - Application site pain [None]
  - Movement disorder [None]
  - Fall [None]
  - Head injury [None]
  - Mental impairment [None]
  - General physical health deterioration [None]
  - Depressed level of consciousness [None]
  - Speech disorder [None]
  - Blood test abnormal [None]
  - Cardiac failure congestive [None]
